FAERS Safety Report 7625244-7 (Version None)
Quarter: 2011Q3

REPORT INFORMATION
  Report Type: 
  Country: None (occurrence: None)
  Receive Date: 20110721
  Receipt Date: 20110627
  Transmission Date: 20111222
  Serious: No
  Sender: FDA-Public Use
  Company Number: US-B.I. PHARMACEUTICALS,INC./RIDGEFIELD-2011-BP-15419BP

PATIENT
  Age: 55 Year
  Sex: Female

DRUGS (25)
  1. OXYCONTIN [Concomitant]
     Indication: PAIN
  2. SOMA [Concomitant]
  3. XANAX [Concomitant]
     Indication: ANXIETY
     Dosage: 3 MG
  4. MULTI-VITAMINS [Concomitant]
     Indication: PROPHYLAXIS
  5. PERCOCET [Concomitant]
     Indication: PAIN
  6. SPIRIVA [Suspect]
     Indication: EMPHYSEMA
     Dosage: 18 MCG
     Route: 055
     Dates: start: 20090101
  7. VIT C [Concomitant]
     Indication: PROPHYLAXIS
  8. IPRATROPIUM BROMIDE [Concomitant]
     Indication: CHRONIC OBSTRUCTIVE PULMONARY DISEASE
  9. NYSTATIN [Concomitant]
     Indication: OESOPHAGITIS
  10. NASACORT [Concomitant]
     Indication: MULTIPLE ALLERGIES
  11. THEOPHYLLINE [Concomitant]
     Indication: CHRONIC OBSTRUCTIVE PULMONARY DISEASE
  12. SINGULAIR [Concomitant]
     Indication: CHRONIC OBSTRUCTIVE PULMONARY DISEASE
  13. MIRALAX [Concomitant]
     Indication: IRRITABLE BOWEL SYNDROME
  14. XOPENEX [Concomitant]
     Indication: CHRONIC OBSTRUCTIVE PULMONARY DISEASE
  15. LASIX [Concomitant]
     Indication: CARDIAC FAILURE CONGESTIVE
  16. NITROGLYCERIN [Concomitant]
     Indication: CHEST PAIN
  17. METAMUCIL-2 [Concomitant]
     Indication: IRRITABLE BOWEL SYNDROME
  18. CARAFATE [Concomitant]
     Indication: IRRITABLE BOWEL SYNDROME
  19. CARAFATE [Concomitant]
     Indication: GASTROOESOPHAGEAL REFLUX DISEASE
  20. OMEPRAZOLE [Concomitant]
     Indication: GASTROOESOPHAGEAL REFLUX DISEASE
  21. VALTREX [Concomitant]
  22. CYMBALTA [Concomitant]
     Indication: DEPRESSION
     Dosage: 120 MG
  23. SYMBICORT [Concomitant]
     Indication: CHRONIC OBSTRUCTIVE PULMONARY DISEASE
  24. TAMARINE [Concomitant]
     Route: 048
  25. POTASSIUM [Concomitant]
     Indication: ELECTROLYTE SUBSTITUTION THERAPY

REACTIONS (4)
  - VISION BLURRED [None]
  - UNEVALUABLE EVENT [None]
  - TREMOR [None]
  - DIPLOPIA [None]
